FAERS Safety Report 7383364-9 (Version None)
Quarter: 2011Q1

REPORT INFORMATION
  Report Type: 
  Country: None (occurrence: None)
  Receive Date: 20110330
  Receipt Date: 20110316
  Transmission Date: 20110831
  Serious: Yes (Hospitalization)
  Sender: FDA-Public Use
  Company Number: US-JNJFOC-20110308215

PATIENT
  Sex: Female
  Weight: 51.2 kg

DRUGS (3)
  1. CIMZIA [Concomitant]
  2. NEXIUM [Concomitant]
  3. REMICADE [Suspect]
     Indication: INFLAMMATORY BOWEL DISEASE
     Route: 042

REACTIONS (1)
  - CLOSTRIDIUM DIFFICILE COLITIS [None]
